FAERS Safety Report 14394913 (Version 2)
Quarter: 2018Q1

REPORT INFORMATION
  Report Type: Spontaneous
  Country: US (occurrence: US)
  Receive Date: 20180116
  Receipt Date: 20180124
  Transmission Date: 20180509
  Serious: No
  Sender: FDA-Public Use
  Company Number: US-B.I. PHARMACEUTICALS,INC./RIDGEFIELD-2018-BI-001366

PATIENT

DRUGS (1)
  1. COMBIVENT [Suspect]
     Active Substance: ALBUTEROL SULFATE\IPRATROPIUM BROMIDE
     Indication: INFLUENZA
     Dosage: STRENGTH: 20MCG/100 MCG PER ACTUATION, ADMINISTRATION CORRECT- YES, TAKEN 3-4 TIMES A DAY
     Route: 065
     Dates: start: 20171222, end: 20171223

REACTIONS (2)
  - Off label use [Unknown]
  - Product quality issue [Unknown]
